FAERS Safety Report 18388698 (Version 1)
Quarter: 2020Q4

REPORT INFORMATION
  Report Type: Spontaneous
  Country: US (occurrence: US)
  Receive Date: 20201015
  Receipt Date: 20201015
  Transmission Date: 20210114
  Serious: Yes (Other)
  Sender: FDA-Public Use
  Company Number: US-PFIZER INC-2020383883

PATIENT
  Age: 89 Year
  Sex: Male

DRUGS (2)
  1. ALOE 99 [Concomitant]
     Dosage: UNK, (0.9 OZ)
  2. PREPARATION H NOS [Suspect]
     Active Substance: COCOA BUTTER\PETROLATUM\PHENYLEPHRINE HYDROCHLORIDE\PHENYLEPHRINE HYDROCHLORIDE OR MINERAL OIL
     Dosage: UNK, (1.0 OZ)

REACTIONS (1)
  - Haemorrhage [Unknown]
